FAERS Safety Report 10613466 (Version 3)
Quarter: 2014Q4

REPORT INFORMATION
  Report Type: Not Available
  Country: ES (occurrence: ES)
  Receive Date: 20141128
  Receipt Date: 20141208
  Transmission Date: 20150529
  Serious: Yes (Death, Other)
  Sender: FDA-Public Use
  Company Number: ES-CELGENE-144-50794-12100019

PATIENT

DRUGS (2)
  1. VIDAZA [Suspect]
     Active Substance: AZACITIDINE
     Indication: ACUTE MYELOID LEUKAEMIA
     Route: 058
  2. VIDAZA [Suspect]
     Active Substance: AZACITIDINE
     Route: 058

REACTIONS (17)
  - Cardiac disorder [Unknown]
  - Musculoskeletal disorder [Unknown]
  - Gastrointestinal disorder [Fatal]
  - Neuropsychiatric syndrome [Fatal]
  - General physical health deterioration [Fatal]
  - Renal disorder [Unknown]
  - Bone marrow failure [Fatal]
  - Haematotoxicity [Fatal]
  - Infection [Fatal]
  - Acute myeloid leukaemia [Fatal]
  - Toxicity to various agents [Fatal]
  - Eye disorder [Unknown]
  - Death [Fatal]
  - Respiratory disorder [Fatal]
  - Hearing impaired [Unknown]
  - Haemorrhage [Fatal]
  - Skin disorder [Unknown]
